FAERS Safety Report 4402204-0 (Version None)
Quarter: 2004Q3

REPORT INFORMATION
  Report Type: 
  Country: None (occurrence: None)
  Receive Date: 20040720
  Receipt Date: 20020730
  Transmission Date: 20050211
  Serious: Yes (Death, Hospitalization, Other)
  Sender: FDA-Public Use
  Company Number: US-MERCK-0207USA02823

PATIENT
  Age: 77 Year
  Sex: Female
  Weight: 84 kg

DRUGS (10)
  1. TYLENOL W/ CODEINE NO. 4 [Concomitant]
     Indication: BACK PAIN
     Route: 065
  2. TYLENOL W/ CODEINE NO. 4 [Concomitant]
     Indication: ARTHRITIS
     Route: 065
  3. CELEBREX [Concomitant]
     Route: 065
     Dates: start: 19990101
  4. ARTHROTEC [Concomitant]
     Route: 048
  5. ARTHROTEC [Concomitant]
     Route: 048
  6. ARTHROTEC [Concomitant]
     Route: 048
  7. PREMARIN [Concomitant]
     Indication: MENOPAUSE
     Route: 065
  8. PROVERA [Concomitant]
     Indication: MENOPAUSE
     Route: 065
  9. DAYPRO [Concomitant]
     Route: 065
  10. VIOXX [Suspect]
     Indication: OSTEOARTHRITIS
     Route: 048
     Dates: start: 19990701, end: 19991201

REACTIONS (32)
  - ACUTE RESPIRATORY DISTRESS SYNDROME [None]
  - ANAEMIA [None]
  - ANOXIC ENCEPHALOPATHY [None]
  - ANXIETY [None]
  - BLOOD PRESSURE FLUCTUATION [None]
  - CARDIAC ARREST [None]
  - CARDIO-RESPIRATORY ARREST [None]
  - COMA [None]
  - CONVULSION [None]
  - CORONARY ARTERY OCCLUSION [None]
  - CORONARY ARTERY STENOSIS [None]
  - DEEP VEIN THROMBOSIS [None]
  - DISEASE PROGRESSION [None]
  - GASTRIC DISORDER [None]
  - HEADACHE [None]
  - HYPERTENSION [None]
  - HYPOKALAEMIA [None]
  - LUMBAR SPINAL STENOSIS [None]
  - MYOCARDIAL INFARCTION [None]
  - PALPITATIONS [None]
  - PNEUMONIA ASPIRATION [None]
  - POSTOPERATIVE ILEUS [None]
  - PULMONARY EMBOLISM [None]
  - PULMONARY OEDEMA [None]
  - SHOCK [None]
  - SINUS TACHYCARDIA [None]
  - SPINAL COLUMN STENOSIS [None]
  - SPONDYLOLISTHESIS ACQUIRED [None]
  - SYPHILIS [None]
  - TRICUSPID VALVE INCOMPETENCE [None]
  - VENTRICULAR FIBRILLATION [None]
  - VENTRICULAR HYPOKINESIA [None]
